FAERS Safety Report 14416966 (Version 3)
Quarter: 2018Q1

REPORT INFORMATION
  Report Type: Spontaneous
  Country: US (occurrence: US)
  Receive Date: 20180122
  Receipt Date: 20180221
  Transmission Date: 20180509
  Serious: No
  Sender: FDA-Public Use
  Company Number: US-PFIZER INC-2018024216

PATIENT
  Sex: Female

DRUGS (1)
  1. ADVIL PM [Suspect]
     Active Substance: DIPHENHYDRAMINE CITRATE\IBUPROFEN
     Dosage: UNK

REACTIONS (4)
  - Product package associated injury [Not Recovered/Not Resolved]
  - Product storage error [Unknown]
  - Hypoaesthesia [Not Recovered/Not Resolved]
  - Product container seal issue [Not Recovered/Not Resolved]
